FAERS Safety Report 8610601-2 (Version None)
Quarter: 2012Q3

REPORT INFORMATION
  Report Type: 
  Country: None (occurrence: None)
  Receive Date: 20120822
  Receipt Date: 20120820
  Transmission Date: 20120928
  Serious: Yes (Death, Life-Threatening, Disabling, Other)
  Sender: FDA-Public Use
  Company Number: PHHY2012CA068850

PATIENT
  Sex: Female

DRUGS (2)
  1. CLOZARIL [Suspect]
     Indication: PARKINSON'S DISEASE
     Dosage: 25 MG, DAILY
     Route: 048
     Dates: start: 20060101
  2. LEVAQUIN [Concomitant]
     Dosage: 500 MG, QD

REACTIONS (2)
  - PNEUMONIA [None]
  - PARKINSON'S DISEASE [None]
